FAERS Safety Report 12876980 (Version 2)
Quarter: 2016Q4

REPORT INFORMATION
  Report Type: Spontaneous
  Country: JP (occurrence: JP)
  Receive Date: 20161024
  Receipt Date: 20161107
  Transmission Date: 20170207
  Serious: Yes (Other)
  Sender: FDA-Public Use
  Company Number: JP-GLAXOSMITHKLINE-JP2016JPN152320

PATIENT
  Age: 32 Year
  Sex: Male

DRUGS (2)
  1. ACYCLOVIR. [Suspect]
     Active Substance: ACYCLOVIR
     Indication: KAPOSI^S VARICELLIFORM ERUPTION
     Dosage: 750 MG, 1D
     Route: 048
  2. CEFDINIR. [Concomitant]
     Active Substance: CEFDINIR
     Indication: KAPOSI^S VARICELLIFORM ERUPTION
     Dosage: 300 MG, 1D

REACTIONS (5)
  - Hallucination [Recovered/Resolved]
  - Encephalitis [Recovered/Resolved]
  - Encephalopathy [Recovered/Resolved]
  - Central nervous system lesion [Recovered/Resolved]
  - Abnormal behaviour [Recovered/Resolved]
